FAERS Safety Report 6464473-5 (Version None)
Quarter: 2009Q4

REPORT INFORMATION
  Report Type: 
  Country: None (occurrence: None)
  Receive Date: 20091201
  Receipt Date: 20091127
  Transmission Date: 20100525
  Serious: Yes (Hospitalization)
  Sender: FDA-Public Use
  Company Number: FR-WYE-G05005009

PATIENT
  Sex: Female

DRUGS (4)
  1. ADVIL [Suspect]
     Indication: INFLUENZA
     Dosage: 1200 MG TOTAL DAILY AS REQUIRED
     Route: 048
     Dates: start: 20090926, end: 20090927
  2. DOLIPRANE [Suspect]
     Indication: INFLUENZA
     Dosage: 3000 MG TOTAL DAILY AS REQUIRED
     Route: 048
     Dates: start: 20090926, end: 20090927
  3. PHOLCODINE TAB [Suspect]
     Indication: INFLUENZA
     Dosage: 3 DOSE-FORM TOTAL DAILY
     Route: 048
     Dates: start: 20090926, end: 20090927
  4. TAMIFLU [Suspect]
     Indication: INFLUENZA
     Dosage: 150 MG TOTAL DAILY
     Route: 048
     Dates: start: 20090926, end: 20090928

REACTIONS (13)
  - ALTERED STATE OF CONSCIOUSNESS [None]
  - ANXIETY [None]
  - C-REACTIVE PROTEIN INCREASED [None]
  - DYSKINESIA [None]
  - EPILEPSY [None]
  - FATIGUE [None]
  - HEART RATE INCREASED [None]
  - HYPOKALAEMIA [None]
  - LEUKOCYTOSIS [None]
  - PARAESTHESIA [None]
  - PARALYSIS [None]
  - SOMNOLENCE [None]
  - TRISMUS [None]
